FAERS Safety Report 8357732-2 (Version None)
Quarter: 2012Q2

REPORT INFORMATION
  Report Type: 
  Country: None (occurrence: None)
  Receive Date: 20120514
  Receipt Date: 20120430
  Transmission Date: 20120825
  Serious: Yes (Other)
  Sender: FDA-Public Use
  Company Number: US-AMGEN-KDC441807

PATIENT
  Age: 38 Year
  Sex: Female
  Weight: 51.3 kg

DRUGS (6)
  1. MULTI-VITAMINS [Concomitant]
     Dosage: UNK UNK, QD
     Route: 048
     Dates: start: 20090625, end: 20100409
  2. ETANERCEPT [Suspect]
     Indication: RHEUMATOID ARTHRITIS
     Dosage: 50 MG, QWK
     Route: 051
     Dates: start: 20090625, end: 20100409
  3. PREDNISONE [Concomitant]
     Indication: RHEUMATOID ARTHRITIS
     Dosage: 5 MG, QD
     Route: 048
     Dates: start: 20090625, end: 20100409
  4. TYLENOL (CAPLET) [Concomitant]
     Indication: PAIN
     Dosage: UNK
     Route: 064
     Dates: start: 20090625, end: 20100122
  5. INFLUENZA A (H1N1) 2009 MONOVALENT VACCINE [Concomitant]
     Dosage: UNK UNK, UNK
     Route: 051
     Dates: start: 20091101, end: 20091110
  6. ETANERCEPT [Suspect]
     Dosage: 50 MG, QWK
     Route: 051
     Dates: start: 20090625, end: 20100409

REACTIONS (3)
  - STREPTOCOCCUS TEST POSITIVE [None]
  - PLATELET COUNT DECREASED [None]
  - OLIGOHYDRAMNIOS [None]
